FAERS Safety Report 16817830 (Version 2)
Quarter: 2019Q4

REPORT INFORMATION
  Report Type: Report from Study
  Country: US (occurrence: US)
  Receive Date: 20190917
  Receipt Date: 20191107
  Transmission Date: 20200122
  Serious: Yes (Other)
  Sender: FDA-Public Use
  Company Number: US-JNJFOC-20190731963

PATIENT
  Age: 70 Year
  Sex: Male

DRUGS (3)
  1. IMBRUVICA [Suspect]
     Active Substance: IBRUTINIB
     Indication: CHRONIC LYMPHOCYTIC LEUKAEMIA
     Dosage: 280 MG, QD
     Route: 048
     Dates: start: 20190712
  2. XARELTO [Concomitant]
     Active Substance: RIVAROXABAN
     Indication: SWELLING
  3. XARELTO [Concomitant]
     Active Substance: RIVAROXABAN
     Indication: THROMBOSIS

REACTIONS (11)
  - Fatigue [Unknown]
  - Anaemia [Unknown]
  - Peripheral swelling [Unknown]
  - Asthenia [Unknown]
  - Deep vein thrombosis [Recovering/Resolving]
  - Arthralgia [Recovered/Resolved]
  - Red blood cell count decreased [Not Recovered/Not Resolved]
  - Upper respiratory tract infection [Unknown]
  - Incorrect dosage administered [Unknown]
  - White blood cell count increased [Recovering/Resolving]
  - Myalgia [Recovered/Resolved]

NARRATIVE: CASE EVENT DATE: 201907
